FAERS Safety Report 8226554-5 (Version None)
Quarter: 2012Q1

REPORT INFORMATION
  Report Type: 
  Country: None (occurrence: None)
  Receive Date: 20120322
  Receipt Date: 20120320
  Transmission Date: 20120608
  Serious: No
  Sender: FDA-Public Use
  Company Number: US-BIOGENIDEC-2011BI036153

PATIENT
  Age: 31 Year
  Sex: Female

DRUGS (2)
  1. TYSABRI [Suspect]
     Indication: MULTIPLE SCLEROSIS
     Route: 042
     Dates: start: 20110915
  2. AVONEX [Concomitant]
     Indication: MULTIPLE SCLEROSIS
     Route: 030
     Dates: start: 20090910

REACTIONS (7)
  - FLUSHING [None]
  - VERTIGO [None]
  - FATIGUE [None]
  - HEADACHE [None]
  - INSOMNIA [None]
  - ABDOMINAL PAIN UPPER [None]
  - NAUSEA [None]
